FAERS Safety Report 9028988 (Version 4)
Quarter: 2013Q3

REPORT INFORMATION
  Report Type: Report from Study
  Country: DE (occurrence: DE)
  Receive Date: 20130123
  Receipt Date: 20130807
  Transmission Date: 20140515
  Serious: Yes (Hospitalization)
  Sender: FDA-Public Use
  Company Number: DE-BRISTOL-MYERS SQUIBB COMPANY-17308974

PATIENT
  Age: 64 Year
  Sex: Female
  Weight: 80 kg

DRUGS (5)
  1. ERBITUX SOLN FOR INF [Suspect]
     Indication: COLORECTAL CANCER METASTATIC
     Dosage: 2JAN13-2JAN13 400MG/M2?9JAN13-ONG 250MG/M2?LAST DOSE:16JAN2013
     Route: 042
     Dates: start: 20130102
  2. FLUOROURACIL [Concomitant]
     Indication: COLORECTAL CANCER
     Dosage: 02JAN13-UNK,BOLUS,200MG/M2?11APR-12JUL13,600MG/M2(320MG/M2,2IN1WK)
     Route: 042
     Dates: start: 20130102, end: 20130712
  3. OXALIPLATIN [Concomitant]
     Indication: COLORECTAL CANCER
     Dosage: 02JAN-10APR2013,85MG/M2,2IN1WK?11APR-12JUN13,68MG/M2,2IN1WK
     Route: 042
     Dates: start: 20130102, end: 20130612
  4. FOLINIC ACID [Concomitant]
     Indication: COLORECTAL CANCER
     Dosage: 02JAN-10APR13,200MG/M2,2IN1WK?11APR-12JUN13,160MG/M2,2IN1WK
     Route: 042
     Dates: start: 20130102
  5. ACETYLSALICYLIC ACID [Concomitant]
     Indication: COAGULOPATHY
     Dates: start: 201301

REACTIONS (2)
  - Aphasia [Recovered/Resolved]
  - Diplegia [Recovered/Resolved]
